FAERS Safety Report 21410313 (Version 1)
Quarter: 2022Q4

REPORT INFORMATION
  Report Type: Spontaneous
  Country: CN (occurrence: CN)
  Receive Date: 20221005
  Receipt Date: 20221005
  Transmission Date: 20230113
  Serious: Yes (Other)
  Sender: FDA-Public Use
  Company Number: None

PATIENT
  Age: 46 Year
  Sex: Female
  Weight: 69 kg

DRUGS (4)
  1. CYCLOPHOSPHAMIDE [Suspect]
     Active Substance: CYCLOPHOSPHAMIDE
     Indication: Invasive ductal breast carcinoma
     Dosage: 0.8 G ONCE DAILY, THIRD COURSE CHEMOTHERAPY, DILUTED WITH 0.9% SODIUM CHLORIDE 40 ML
     Route: 042
     Dates: start: 20220916, end: 20220916
  2. EPIRUBICIN HYDROCHLORIDE [Suspect]
     Active Substance: EPIRUBICIN HYDROCHLORIDE
     Indication: Invasive ductal breast carcinoma
     Dosage: 130MG ONCE DAILY, THIRD COURSE CHEMOTHERAPY, DILUTED WITH 0.9% SODIUM CHLORIDE 100 ML,
     Route: 041
     Dates: start: 20220916, end: 20220916
  3. SODIUM CHLORIDE [Concomitant]
     Active Substance: SODIUM CHLORIDE
     Indication: Medication dilution
     Dosage: 40 ML, ONCE DAILY, DILUTED WITH 0.8G CYCLOPHOSPHAMIDE, THIRD COURSE CHEMOTHERAPY
     Route: 042
     Dates: start: 20220916, end: 20220916
  4. SODIUM CHLORIDE [Concomitant]
     Active Substance: SODIUM CHLORIDE
     Dosage: 100 ML, ONCE DAILY, DILUENT WITH 130 MG EPIRUBICIN HYDROCHLORIDE , INTO THE PUMP TO PROTECT FROM LIG
     Route: 041
     Dates: start: 20220916, end: 20220916

REACTIONS (5)
  - Decreased appetite [Recovering/Resolving]
  - Dizziness [Recovering/Resolving]
  - Nausea [Recovering/Resolving]
  - Vomiting [Recovering/Resolving]
  - Asthenia [Recovering/Resolving]

NARRATIVE: CASE EVENT DATE: 20220916
